FAERS Safety Report 14296002 (Version 1)
Quarter: 2017Q4

REPORT INFORMATION
  Report Type: Spontaneous
  Country: US (occurrence: US)
  Receive Date: 20171215
  Receipt Date: 20171215
  Transmission Date: 20180321
  Serious: No
  Sender: FDA-Public Use
  Company Number: None

PATIENT
  Age: 79 Year
  Sex: Female

DRUGS (1)
  1. HUMIRA [Suspect]
     Active Substance: ADALIMUMAB
     Indication: RHEUMATOID ARTHRITIS
     Dosage: DOSE - 40MG/0.8ML?FREQUENCY - EVERY 14 DAYS //2 PER 28 DAYS?ON HOLD
     Route: 058
     Dates: start: 20120731

REACTIONS (1)
  - Herpes zoster [None]
